FAERS Safety Report 12990707 (Version 2)
Quarter: 2016Q4

REPORT INFORMATION
  Report Type: Spontaneous
  Country: US (occurrence: US)
  Receive Date: 20161201
  Receipt Date: 20161227
  Transmission Date: 20170207
  Serious: Yes (Death)
  Sender: FDA-Public Use
  Company Number: US-JNJFOC-20161129402

PATIENT
  Sex: Male

DRUGS (21)
  1. BETAMETHASONE DIPROPIONATE. [Concomitant]
     Active Substance: BETAMETHASONE DIPROPIONATE
     Indication: PRURIGO
     Dosage: PATIENT REFUSED
     Route: 065
     Dates: start: 20161115
  2. DESYREL [Concomitant]
     Active Substance: TRAZODONE HYDROCHLORIDE
     Indication: INSOMNIA
     Dosage: PHYSICALLY UNABLE TO TAKE
     Route: 048
     Dates: start: 20161126
  3. INVEGA TRINZA [Suspect]
     Active Substance: PALIPERIDONE PALMITATE
     Indication: SCHIZOPHRENIA
     Route: 030
     Dates: start: 20151216, end: 20161122
  4. ZYPREXA [Concomitant]
     Active Substance: OLANZAPINE
     Indication: AGITATION
     Dosage: PHYSICALLY UNABLE TO TAKE
     Route: 048
     Dates: start: 20161126
  5. BETAMETHASONE DIPROPIONATE. [Concomitant]
     Active Substance: BETAMETHASONE DIPROPIONATE
     Indication: PRURIGO
     Dosage: PATIENT REFUSED
     Route: 065
     Dates: start: 20161104
  6. BETAMETHASONE DIPROPIONATE. [Concomitant]
     Active Substance: BETAMETHASONE DIPROPIONATE
     Indication: PRURIGO
     Dosage: PATIENT REFUSED
     Route: 065
     Dates: start: 20161122
  7. CONSTULOSE [Concomitant]
     Active Substance: LACTULOSE
     Indication: CONSTIPATION
     Dosage: RESIDENT REFUSED
     Route: 048
     Dates: start: 20161104
  8. ZYRTEC [Concomitant]
     Active Substance: CETIRIZINE HYDROCHLORIDE
     Indication: CONSTIPATION
     Dosage: RESIDENT REFUSED
     Route: 048
     Dates: start: 20161102
  9. ZYPREXA [Concomitant]
     Active Substance: OLANZAPINE
     Indication: AGITATION
     Route: 048
     Dates: start: 20161114
  10. BETAMETHASONE DIPROPIONATE. [Concomitant]
     Active Substance: BETAMETHASONE DIPROPIONATE
     Indication: PRURIGO
     Dosage: PHYSICALLY UNABLE TO TAKE
     Route: 065
     Dates: start: 20161126
  11. BETAMETHASONE DIPROPIONATE. [Concomitant]
     Active Substance: BETAMETHASONE DIPROPIONATE
     Indication: PRURIGO
     Dosage: PATIENT REFUSED
     Route: 065
     Dates: start: 20161123
  12. CONSTULOSE [Concomitant]
     Active Substance: LACTULOSE
     Indication: CONSTIPATION
     Route: 048
     Dates: start: 20160826, end: 20160826
  13. BETAMETHASONE DIPROPIONATE. [Concomitant]
     Active Substance: BETAMETHASONE DIPROPIONATE
     Indication: PRURIGO
     Dosage: APPLY TO AFFECTED AREA AS A THIN LAYER AS DIRECRED
     Route: 065
     Dates: start: 20160826, end: 20161028
  14. BETAMETHASONE DIPROPIONATE. [Concomitant]
     Active Substance: BETAMETHASONE DIPROPIONATE
     Indication: PRURIGO
     Dosage: PATIENT REFUSED
     Route: 065
     Dates: start: 20161114
  15. CONSTULOSE [Concomitant]
     Active Substance: LACTULOSE
     Indication: CONSTIPATION
     Dosage: PHYSICALLY UNABLE TO TAKE
     Route: 048
     Dates: start: 20161126
  16. ZYRTEC [Concomitant]
     Active Substance: CETIRIZINE HYDROCHLORIDE
     Indication: CONSTIPATION
     Dosage: PHYSICALLY UNABLE TO TAKE
     Route: 048
     Dates: start: 20161126
  17. BETAMETHASONE DIPROPIONATE. [Concomitant]
     Active Substance: BETAMETHASONE DIPROPIONATE
     Indication: PRURIGO
     Dosage: PATIENT REFUSED
     Route: 065
     Dates: start: 20161121
  18. DESYREL [Concomitant]
     Active Substance: TRAZODONE HYDROCHLORIDE
     Indication: INSOMNIA
     Dosage: ONE TABLET AT BEDTIME
     Route: 048
     Dates: start: 20160725, end: 20161101
  19. ZYRTEC [Concomitant]
     Active Substance: CETIRIZINE HYDROCHLORIDE
     Indication: CONSTIPATION
     Dosage: RESIDENT REFUSED
     Route: 048
     Dates: start: 20161101
  20. ZYPREXA [Concomitant]
     Active Substance: OLANZAPINE
     Indication: AGITATION
     Dosage: 1 TABLET AT BED TIME
     Route: 048
     Dates: start: 20160725, end: 20161101
  21. ZYRTEC [Concomitant]
     Active Substance: CETIRIZINE HYDROCHLORIDE
     Indication: CONSTIPATION
     Route: 048
     Dates: start: 20160826, end: 20160826

REACTIONS (1)
  - Death [Fatal]
